FAERS Safety Report 16405242 (Version 5)
Quarter: 2022Q1

REPORT INFORMATION
  Report Type: Report from Study
  Country: US (occurrence: US)
  Receive Date: 20190607
  Receipt Date: 20220124
  Transmission Date: 20220423
  Serious: No
  Sender: FDA-Public Use
  Company Number: US-SHIRE-US201918355

PATIENT
  Sex: Male

DRUGS (3)
  1. VELAGLUCERASE ALFA [Suspect]
     Active Substance: VELAGLUCERASE ALFA
     Indication: Gaucher^s disease
     Dosage: UNK UNK, 2/MONTH
     Route: 042
     Dates: start: 20100518
  2. VELAGLUCERASE ALFA [Suspect]
     Active Substance: VELAGLUCERASE ALFA
     Dosage: UNK UNK, 2/MONTH
     Route: 042
     Dates: start: 20150112
  3. VELAGLUCERASE ALFA [Suspect]
     Active Substance: VELAGLUCERASE ALFA
     Dosage: UNK UNK, Q2WEEKS
     Route: 042
     Dates: start: 20100528

REACTIONS (3)
  - Arthralgia [Unknown]
  - Sciatica [Unknown]
  - Fatigue [Not Recovered/Not Resolved]
